FAERS Safety Report 6086827-1 (Version None)
Quarter: 2009Q1

REPORT INFORMATION
  Report Type: 
  Country: None (occurrence: None)
  Receive Date: 20090213
  Receipt Date: 20090128
  Transmission Date: 20090719
  Serious: Yes (Other)
  Sender: FDA-Public Use
  Company Number: B0557795A

PATIENT
  Sex: 0

DRUGS (6)
  1. LAPATINIB (FORMULATION UNKNOWN) (GENERIC) (LAPATINIB) [Suspect]
     Indication: BREAST CANCER
  2. DOXORUBICIN HCL [Suspect]
     Indication: BREAST CANCER
     Dosage: 60 MG/M2 /
  3. CYCLOPHOSPHAMIDE [Suspect]
     Indication: BREAST CANCER
     Dosage: 600 MG/M2 /
  4. PACLITAXEL [Suspect]
     Indication: BREAST CANCER
     Dosage: 80 MG/M2 /
  5. TRASTUZUMAB (FORMULATION UNKNOWN) (TRASTUZUMAB) [Suspect]
     Indication: BREAST CANCER
  6. PEGFILGRASTIM [Concomitant]

REACTIONS (1)
  - RASH [None]
